FAERS Safety Report 25390676 (Version 2)
Quarter: 2025Q3

REPORT INFORMATION
  Report Type: Spontaneous
  Country: US (occurrence: US)
  Receive Date: 20250603
  Receipt Date: 20250701
  Transmission Date: 20251020
  Serious: No
  Sender: ROCHE
  Company Number: US-ROCHE-10000298294

PATIENT
  Sex: Female

DRUGS (2)
  1. OCREVUS [Suspect]
     Active Substance: OCRELIZUMAB
     Indication: Relapsing-remitting multiple sclerosis
     Dosage: 300MG/10ML, MOST RECENT DOSE ADMINISTERED ON 31/DEC/2024
     Route: 042
     Dates: start: 202412
  2. TOPIRAMATE [Concomitant]
     Active Substance: TOPIRAMATE
     Dates: start: 202504

REACTIONS (1)
  - Alopecia [Not Recovered/Not Resolved]
